FAERS Safety Report 20312436 (Version 1)
Quarter: 2022Q1

REPORT INFORMATION
  Report Type: Spontaneous
  Country: US (occurrence: None)
  Receive Date: 20220107
  Receipt Date: 20220107
  Transmission Date: 20220423
  Serious: Yes (unspecified)
  Sender: FDA-Public Use
  Company Number: None

PATIENT
  Age: 45 Year
  Sex: Male
  Weight: 119.25 kg

DRUGS (3)
  1. BAMLANIVIMAB [Suspect]
     Active Substance: BAMLANIVIMAB
     Indication: COVID-19
     Dosage: FREQUENCY : ONCE;?
     Route: 041
  2. ETESEVIMAB [Suspect]
     Active Substance: ETESEVIMAB
     Indication: COVID-19
     Dosage: FREQUENCY : ONCE;?
     Route: 041
  3. 0.9% NS [Concomitant]
     Dates: start: 20220107, end: 20220107

REACTIONS (6)
  - Infusion related reaction [None]
  - Chest pain [None]
  - Dyspnoea [None]
  - Loss of consciousness [None]
  - Fall [None]
  - Head injury [None]

NARRATIVE: CASE EVENT DATE: 20220107
